FAERS Safety Report 7056458-5 (Version None)
Quarter: 2010Q4

REPORT INFORMATION
  Report Type: 
  Country: None (occurrence: None)
  Receive Date: 20101021
  Receipt Date: 20101007
  Transmission Date: 20110411
  Serious: Yes (Other)
  Sender: FDA-Public Use
  Company Number: NL-ROCHE-735018

PATIENT
  Age: 96 Year
  Sex: Female

DRUGS (4)
  1. BEVACIZUMAB [Suspect]
     Route: 065
  2. RANIBIZUMAB [Suspect]
     Dosage: 0.05 ML, UNK
     Route: 031
  3. RANIBIZUMAB [Suspect]
     Dosage: 0.05 ML, UNK
     Route: 031
     Dates: start: 20091006
  4. RANIBIZUMAB [Suspect]
     Dosage: 0.05 ML, UNK
     Route: 031
     Dates: start: 20090526

REACTIONS (2)
  - CHOROIDAL HAEMORRHAGE [None]
  - IRIS DISORDER [None]
